FAERS Safety Report 7244536-7 (Version None)
Quarter: 2011Q1

REPORT INFORMATION
  Report Type: 
  Country: None (occurrence: None)
  Receive Date: 20110125
  Receipt Date: 20110120
  Transmission Date: 20110831
  Serious: Yes (Hospitalization)
  Sender: FDA-Public Use
  Company Number: JP-PFIZER INC-2011014558

PATIENT
  Age: 60 Year
  Sex: Female

DRUGS (3)
  1. ASVERIN [Concomitant]
  2. ZITHROMAC SR [Suspect]
     Dosage: UNK
  3. MUCOSIL-10 [Concomitant]

REACTIONS (1)
  - SHOCK [None]
